FAERS Safety Report 9674485 (Version 1)
Quarter: 2013Q4

REPORT INFORMATION
  Report Type: Spontaneous
  Country: US (occurrence: US)
  Receive Date: 20131107
  Receipt Date: 20131107
  Transmission Date: 20140711
  Serious: No
  Sender: FDA-Public Use
  Company Number: US-009507513-1311USA002305

PATIENT
  Sex: 0
  Weight: 96.6 kg

DRUGS (1)
  1. NEXPLANON [Suspect]
     Dosage: DOSE AND FREQUENCY: 68 MG/ONE ROD EVERY 3 YEARS
     Route: 059
     Dates: start: 20131024

REACTIONS (3)
  - Complication of device insertion [Unknown]
  - Product quality issue [Unknown]
  - No adverse event [Unknown]
